FAERS Safety Report 8108409-X (Version None)
Quarter: 2012Q1

REPORT INFORMATION
  Report Type: 
  Country: None (occurrence: None)
  Receive Date: 20120202
  Receipt Date: 20120111
  Transmission Date: 20120608
  Serious: No
  Sender: FDA-Public Use
  Company Number: US-AMGEN-USASP2012002168

PATIENT
  Sex: Male

DRUGS (1)
  1. ENBREL [Suspect]
     Indication: PRODUCT USED FOR UNKNOWN INDICATION
     Dosage: 50 MG, QWK
     Dates: start: 20111201

REACTIONS (8)
  - MUSCLE SPASMS [None]
  - SWELLING FACE [None]
  - ANXIETY [None]
  - SNEEZING [None]
  - LIP SWELLING [None]
  - NAUSEA [None]
  - DECREASED APPETITE [None]
  - RHINORRHOEA [None]
